FAERS Safety Report 14420112 (Version 1)
Quarter: 2018Q1

REPORT INFORMATION
  Report Type: Spontaneous
  Country: US (occurrence: US)
  Receive Date: 20180122
  Receipt Date: 20180122
  Transmission Date: 20180509
  Serious: No
  Sender: FDA-Public Use
  Company Number: US-ROCHE-1903577

PATIENT
  Age: 49 Year
  Sex: Female
  Weight: 58.11 kg

DRUGS (1)
  1. RITUXAN [Suspect]
     Active Substance: RITUXIMAB
     Indication: RHEUMATOID ARTHRITIS
     Dosage: ONGOING: UNKNOWN
     Route: 042
     Dates: start: 20170301

REACTIONS (7)
  - Chest discomfort [Unknown]
  - Asthenia [Unknown]
  - Dry throat [Recovering/Resolving]
  - Hypophagia [Recovering/Resolving]
  - Throat irritation [Recovering/Resolving]
  - Barrett^s oesophagus [Unknown]
  - Thrombosis [Unknown]

NARRATIVE: CASE EVENT DATE: 20170301
